FAERS Safety Report 7046436-4 (Version None)
Quarter: 2010Q4

REPORT INFORMATION
  Report Type: 
  Country: None (occurrence: None)
  Receive Date: 20101014
  Receipt Date: 20101005
  Transmission Date: 20110411
  Serious: No
  Sender: FDA-Public Use
  Company Number: US-PFIZER INC-2010127430

PATIENT
  Sex: Female

DRUGS (2)
  1. TOVIAZ [Suspect]
     Indication: HYPERTONIC BLADDER
     Dates: start: 20100901
  2. DETROL LA [Concomitant]
     Indication: HYPERTONIC BLADDER
     Dates: end: 20100901

REACTIONS (1)
  - POLLAKIURIA [None]
